FAERS Safety Report 12774260 (Version 5)
Quarter: 2017Q1

REPORT INFORMATION
  Report Type: Spontaneous
  Country: US (occurrence: US)
  Receive Date: 20160923
  Receipt Date: 20170109
  Transmission Date: 20170428
  Serious: No
  Sender: FDA-Public Use
  Company Number: US-PFIZER INC-2016230148

PATIENT
  Age: 29 Year
  Sex: Female

DRUGS (9)
  1. COLACE [Concomitant]
     Active Substance: DOCUSATE SODIUM
     Indication: CONSTIPATION
     Dosage: 100 MG, AS NEEDED (ONCE DAILY)
     Route: 048
  2. PHENERGAN [Concomitant]
     Active Substance: PROMETHAZINE HYDROCHLORIDE
     Dosage: 25 MG, AS NEEDED (TAKE 1 TAB BY MOUTH ONCE DAILY AS NEEDED)
     Route: 048
  3. LYRICA [Suspect]
     Active Substance: PREGABALIN
     Dosage: 150 MG, 3X/DAY
     Route: 048
  4. FLEXERIL [Concomitant]
     Active Substance: CYCLOBENZAPRINE HYDROCHLORIDE
     Indication: MUSCLE SPASMS
     Dosage: 10 MG, AS NEEDED (EVERY 8 HOURS)
     Route: 048
  5. ATROVENT [Concomitant]
     Active Substance: IPRATROPIUM BROMIDE
     Indication: UPPER RESPIRATORY TRACT INFECTION
     Dosage: UNK UNK, 3X/DAY (2 SPRAYS INTO EACH NOSTRIL)
     Route: 045
  6. LYRICA [Suspect]
     Active Substance: PREGABALIN
     Dosage: 100 MG, 3X/DAY
     Route: 048
  7. CYMBALTA [Concomitant]
     Active Substance: DULOXETINE HYDROCHLORIDE
     Dosage: 60 MG, 1X/DAY
     Route: 048
  8. VITAMIN D3 [Concomitant]
     Active Substance: CHOLECALCIFEROL
     Dosage: 5000 IU, 1X/DAY
     Route: 048
  9. PERCOCET [Concomitant]
     Active Substance: ACETAMINOPHEN\OXYCODONE HYDROCHLORIDE
     Indication: PAIN
     Dosage: UNK UNK, AS NEEDED ( TAKE 1-2 TABS EVERY 6 HOURS AS NEEDED; OXYCODONE 7.5MG/ ACETAMINOPHEN 325MG)
     Route: 048

REACTIONS (10)
  - Feeling abnormal [Unknown]
  - Sinus disorder [Unknown]
  - Facial pain [Unknown]
  - Withdrawal syndrome [Unknown]
  - Cough [Unknown]
  - Ear pain [Unknown]
  - Oropharyngeal pain [Unknown]
  - Hypoacusis [Unknown]
  - Back pain [Unknown]
  - Hyperhidrosis [Unknown]
